FAERS Safety Report 11789739 (Version 1)
Quarter: 2015Q4

REPORT INFORMATION
  Report Type: Other
  Country: IT (occurrence: IT)
  Receive Date: 20151201
  Receipt Date: 20151201
  Transmission Date: 20160305
  Serious: Yes (Other)
  Sender: FDA-Public Use
  Company Number: IT-MYLANLABS-2015M1041094

PATIENT

DRUGS (1)
  1. PAROXETINE HYDROCHLORIDE. [Suspect]
     Active Substance: PAROXETINE HYDROCHLORIDE
     Indication: PRODUCT USED FOR UNKNOWN INDICATION

REACTIONS (5)
  - Serotonin syndrome [Unknown]
  - Herbal interaction [Unknown]
  - Autonomic nervous system imbalance [Unknown]
  - Restlessness [Unknown]
  - Tremor [Unknown]
